FAERS Safety Report 16402866 (Version 6)
Quarter: 2019Q4

REPORT INFORMATION
  Report Type: Report from Study
  Country: US (occurrence: US)
  Receive Date: 20190607
  Receipt Date: 20191016
  Transmission Date: 20200122
  Serious: Yes (Hospitalization, Other)
  Sender: FDA-Public Use
  Company Number: US-TESARO-2019-TSO01931-US

PATIENT
  Age: 78 Year
  Sex: Female
  Weight: 66 kg

DRUGS (7)
  1. NIRAPARIB [Suspect]
     Active Substance: NIRAPARIB
     Dosage: 200 MG, QD AT NOON TIME
     Route: 048
     Dates: start: 201905
  2. BENADRYL [Concomitant]
     Active Substance: DIPHENHYDRAMINE HYDROCHLORIDE
     Indication: PRODUCT USED FOR UNKNOWN INDICATION
     Dosage: UNK
  3. COREG [Concomitant]
     Active Substance: CARVEDILOL
     Indication: PRODUCT USED FOR UNKNOWN INDICATION
     Dosage: 25 MG, BID
  4. NIRAPARIB [Suspect]
     Active Substance: NIRAPARIB
     Indication: OVARIAN CANCER
     Dosage: 200 MG, QPM WITHOUT FOOD, AT 9PM
     Route: 048
     Dates: start: 20190514
  5. NIRAPARIB [Suspect]
     Active Substance: NIRAPARIB
     Dosage: 100 MG, AT NOON W/O FOOD
     Dates: start: 20190604
  6. NIRAPARIB [Suspect]
     Active Substance: NIRAPARIB
     Dosage: 100 MG, AT 12:00-13:00 WITH FOOD
     Dates: end: 20191008
  7. CLONIDINE. [Concomitant]
     Active Substance: CLONIDINE
     Indication: PRODUCT USED FOR UNKNOWN INDICATION
     Dosage: 0.1 MG, PATCH

REACTIONS (13)
  - Insomnia [Recovering/Resolving]
  - Asthenia [Unknown]
  - Palpitations [Recovering/Resolving]
  - Blood pressure increased [Recovering/Resolving]
  - Fatigue [Not Recovered/Not Resolved]
  - Drug ineffective [Unknown]
  - Depression [Unknown]
  - Headache [Recovering/Resolving]
  - Back pain [Unknown]
  - Blood glucose increased [Not Recovered/Not Resolved]
  - Anxiety [Unknown]
  - Product dose omission [Not Recovered/Not Resolved]
  - Memory impairment [Recovering/Resolving]

NARRATIVE: CASE EVENT DATE: 20190518
